FAERS Safety Report 6524507-6 (Version None)
Quarter: 2010Q1

REPORT INFORMATION
  Report Type: 
  Country: None (occurrence: None)
  Receive Date: 20100104
  Receipt Date: 20091222
  Transmission Date: 20100710
  Serious: No
  Sender: FDA-Public Use
  Company Number: US-JNJFOC-20091206699

PATIENT
  Sex: Male
  Weight: 63.5 kg

DRUGS (5)
  1. FENTANYL [Suspect]
     Indication: PAIN
     Route: 062
  2. NEURONTIN [Concomitant]
     Indication: PAIN
     Route: 048
  3. ZANAFLEX [Concomitant]
     Indication: MUSCLE SPASMS
     Route: 048
  4. METOPROLOL TARTRATE [Concomitant]
     Indication: HYPERTENSION
     Route: 048
  5. CELEXA [Concomitant]
     Indication: DEPRESSION
     Route: 048

REACTIONS (4)
  - INADEQUATE ANALGESIA [None]
  - MUSCLE SPASMS [None]
  - PRODUCT QUALITY ISSUE [None]
  - WRONG TECHNIQUE IN DRUG USAGE PROCESS [None]
